FAERS Safety Report 7592357-8 (Version None)
Quarter: 2011Q3

REPORT INFORMATION
  Report Type: 
  Country: None (occurrence: None)
  Receive Date: 20110706
  Receipt Date: 20110627
  Transmission Date: 20111222
  Serious: Yes (Other)
  Sender: FDA-Public Use
  Company Number: DE-JNJFOC-20110611145

PATIENT
  Age: 56 Year
  Sex: Female

DRUGS (14)
  1. RISPERDAL [Suspect]
     Route: 048
     Dates: start: 20101201, end: 20110208
  2. METOPROLOL TARTRATE [Suspect]
     Route: 048
     Dates: start: 20110111, end: 20110127
  3. METOPROLOL TARTRATE [Suspect]
     Route: 048
     Dates: start: 20110107, end: 20110610
  4. ABILIFY [Concomitant]
     Route: 048
     Dates: start: 20101218, end: 20110126
  5. RISPERDAL [Suspect]
     Route: 048
     Dates: start: 20110214, end: 20110214
  6. RISPERDAL [Suspect]
     Route: 048
     Dates: start: 20110209, end: 20110209
  7. ZOLPIDEM [Concomitant]
     Route: 048
     Dates: start: 20110112, end: 20110203
  8. RISPERDAL [Suspect]
     Indication: PRODUCT USED FOR UNKNOWN INDICATION
     Route: 048
     Dates: start: 20110217, end: 20110217
  9. RISPERDAL [Suspect]
     Route: 048
     Dates: end: 20101201
  10. RISPERDAL [Suspect]
     Route: 048
     Dates: start: 20110210, end: 20110213
  11. RISPERDAL [Suspect]
     Route: 048
     Dates: start: 20110215, end: 20110216
  12. METOPROLOL TARTRATE [Suspect]
     Indication: PRODUCT USED FOR UNKNOWN INDICATION
     Route: 048
     Dates: start: 20110128, end: 20110220
  13. METOPROLOL TARTRATE [Suspect]
     Route: 048
     Dates: start: 20110103, end: 20110106
  14. METOPROLOL TARTRATE [Suspect]
     Route: 048
     Dates: start: 20110221

REACTIONS (1)
  - VENTRICULAR EXTRASYSTOLES [None]
